FAERS Safety Report 8609799-1 (Version None)
Quarter: 2012Q3

REPORT INFORMATION
  Report Type: 
  Country: None (occurrence: None)
  Receive Date: 20120821
  Receipt Date: 20120807
  Transmission Date: 20120928
  Serious: Yes (Other)
  Sender: FDA-Public Use
  Company Number: CHPA2012US017797

PATIENT
  Age: 23 Year
  Sex: Female

DRUGS (1)
  1. EXCEDRIN MENSTRUAL COMPLETE EXPRESS GEL CAPLETS [Suspect]
     Indication: DYSMENORRHOEA
     Dosage: 2 DF, 2 TO 3 TIMES PER DAY, PRN
     Route: 048

REACTIONS (1)
  - ENDOMETRIOSIS [None]
